FAERS Safety Report 15539909 (Version 1)
Quarter: 2018Q4

REPORT INFORMATION
  Report Type: Report from Study
  Country: FR (occurrence: FR)
  Receive Date: 20181023
  Receipt Date: 20181023
  Transmission Date: 20190205
  Serious: Yes (Hospitalization)
  Sender: FDA-Public Use
  Company Number: FR-IPSEN BIOPHARMACEUTICALS, INC.-2017-11452

PATIENT
  Age: 50 Year
  Sex: Female
  Weight: 64 kg

DRUGS (6)
  1. MANTADIX [Concomitant]
     Active Substance: AMANTADINE HYDROCHLORIDE
     Dosage: AT NOON
     Route: 048
  2. GABAPENTIN. [Concomitant]
     Active Substance: GABAPENTIN
     Dosage: ONE IN THE MORNING (08:00), ONE IN THE EVENING (18:00)
     Route: 048
  3. DITROPAN [Concomitant]
     Active Substance: OXYBUTYNIN CHLORIDE
     Dosage: ONE IN THE MORNING (08:00), ONE AT NOON (12:00) AND ONE IN THE EVENING (18:00)
  4. CERIS [Concomitant]
     Active Substance: TROSPIUM CHLORIDE
     Dosage: ONE IN THE MORNING (08:00), ONE IN THE EVENING (18:00)
     Route: 048
  5. DYSPORT [Suspect]
     Active Substance: ABOBOTULINUMTOXINA
     Indication: NEUROGENIC BLADDER
     Dosage: NOT REPORTED
     Route: 043
     Dates: start: 20170921, end: 20180927
  6. DRIPTANE [Concomitant]
     Active Substance: OXYBUTYNIN
     Dosage: ONE IN THE MORNING (08:00), ONE AT NOON (12:00), ONE IN THE EVENING (18:00)
     Route: 048

REACTIONS (1)
  - Pyelonephritis [Recovered/Resolved]

NARRATIVE: CASE EVENT DATE: 20170921
